FAERS Safety Report 23808261 (Version 2)
Quarter: 2024Q2

REPORT INFORMATION
  Report Type: Spontaneous
  Country: JP (occurrence: JP)
  Receive Date: 20240502
  Receipt Date: 20240520
  Transmission Date: 20240716
  Serious: Yes (Hospitalization)
  Sender: FDA-Public Use
  Company Number: JP-ELI_LILLY_AND_COMPANY-JP202404015064AA

PATIENT
  Sex: Female

DRUGS (1)
  1. EVISTA [Suspect]
     Active Substance: RALOXIFENE HYDROCHLORIDE
     Indication: Osteoporosis
     Route: 048

REACTIONS (1)
  - Fracture [Unknown]
